FAERS Safety Report 14710749 (Version 1)
Quarter: 2018Q2

REPORT INFORMATION
  Report Type: Spontaneous
  Country: US (occurrence: US)
  Receive Date: 20180403
  Receipt Date: 20180403
  Transmission Date: 20180711
  Serious: No
  Sender: FDA-Public Use
  Company Number: US-ROCHE-1889449

PATIENT
  Sex: Female

DRUGS (1)
  1. ERIVEDGE [Suspect]
     Active Substance: VISMODEGIB
     Indication: BASAL CELL CARCINOMA
     Route: 065

REACTIONS (8)
  - Abdominal pain upper [Unknown]
  - Migraine [Unknown]
  - Mouth swelling [Unknown]
  - Oral contusion [Unknown]
  - Alopecia [Unknown]
  - Muscle spasms [Unknown]
  - Nausea [Unknown]
  - Gingival swelling [Unknown]
